FAERS Safety Report 9095654 (Version 1)
Quarter: 2013Q1

REPORT INFORMATION
  Report Type: Spontaneous
  Country: FR (occurrence: FR)
  Receive Date: 20130219
  Receipt Date: 20130219
  Transmission Date: 20140127
  Serious: Yes (Other)
  Sender: FDA-Public Use
  Company Number: FR-PFIZER INC-2013058439

PATIENT
  Age: 74 Year
  Sex: Female

DRUGS (4)
  1. ATORVASTATINE PFIZER [Suspect]
     Dosage: 20 MG, UNK
     Dates: start: 20121010
  2. STAGID [Concomitant]
     Dosage: 350 MG IN THE EVENING
  3. NISIS [Concomitant]
     Dosage: 40 MG IN THE EVENING
  4. PARIET [Concomitant]
     Indication: GASTRIC DISORDER
     Dosage: 20 MG, AS NEEDED

REACTIONS (12)
  - Diabetes mellitus [Unknown]
  - Oropharyngeal pain [Not Recovered/Not Resolved]
  - Dysphagia [Not Recovered/Not Resolved]
  - Pharyngeal oedema [Not Recovered/Not Resolved]
  - Lip swelling [Not Recovered/Not Resolved]
  - Paraesthesia oral [Not Recovered/Not Resolved]
  - Fatigue [Not Recovered/Not Resolved]
  - Epistaxis [Unknown]
  - Headache [Unknown]
  - Diarrhoea [Unknown]
  - Pruritus [Unknown]
  - Skin exfoliation [Unknown]
